FAERS Safety Report 24463178 (Version 3)
Quarter: 2024Q4

REPORT INFORMATION
  Report Type: Report from Study
  Country: CO (occurrence: CO)
  Receive Date: 20241018
  Receipt Date: 20241206
  Transmission Date: 20250114
  Serious: Yes (Hospitalization, Other)
  Sender: ROCHE
  Company Number: CO-002147023-NVSC2023CO118165

PATIENT
  Age: 11 Year
  Sex: Female
  Weight: 43 kg

DRUGS (20)
  1. XOLAIR [Suspect]
     Active Substance: OMALIZUMAB
     Indication: Asthma
     Dosage: 300 MG, BIW (EVERY TWO WEEKS)
     Route: 058
  2. XOLAIR [Suspect]
     Active Substance: OMALIZUMAB
     Dosage: 600 MG, QMO
     Route: 058
  3. XOLAIR [Suspect]
     Active Substance: OMALIZUMAB
     Dosage: 300 MG, BIW (EVERY 15 DAYS)
     Route: 058
     Dates: start: 20230304
  4. XOLAIR [Suspect]
     Active Substance: OMALIZUMAB
     Dosage: UNK
     Route: 065
     Dates: start: 20230603
  5. XOLAIR [Suspect]
     Active Substance: OMALIZUMAB
     Dosage: 150 MG, BIW (EVERY 15 DAYS)
     Route: 058
     Dates: start: 20200324, end: 20231025
  6. XOLAIR [Suspect]
     Active Substance: OMALIZUMAB
     Dosage: 300 MG, BIW (EVERY TWO WEEKS)
     Route: 058
     Dates: start: 20230311
  7. XOLAIR [Suspect]
     Active Substance: OMALIZUMAB
     Dosage: 600 MG, QMO
     Route: 058
  8. XOLAIR [Suspect]
     Active Substance: OMALIZUMAB
     Dosage: 300 MG, ONCE EVERY TWO WEEKS
     Route: 058
     Dates: start: 20230324
  9. XOLAIR [Suspect]
     Active Substance: OMALIZUMAB
     Dosage: 300 MG, ONCE EVERY TWO WEEKS
     Route: 058
     Dates: start: 20231025
  10. XOLAIR [Suspect]
     Active Substance: OMALIZUMAB
     Dosage: 300 MG, BIW (EVERY TWO WEEKS)
     Route: 058
     Dates: start: 20230311
  11. XOLAIR [Suspect]
     Active Substance: OMALIZUMAB
     Route: 058
  12. XOLAIR [Suspect]
     Active Substance: OMALIZUMAB
     Dosage: 300 MG, BIW (EVERY TWO WEEKS)
     Route: 058
     Dates: start: 20240802
  13. ALBUTEROL [Concomitant]
     Active Substance: ALBUTEROL
     Indication: Product used for unknown indication
     Dosage: UNK
  14. FLUTICASONE [Concomitant]
     Active Substance: FLUTICASONE
     Indication: Product used for unknown indication
     Route: 065
     Dates: start: 202401
  15. FLUTICASONE [Concomitant]
     Active Substance: FLUTICASONE
     Dosage: UNK, Q12H (1 SHOT IN EACH NOSTRIL)
  16. OLOPATADINE [Concomitant]
     Active Substance: OLOPATADINE
     Indication: Eye allergy
     Route: 065
     Dates: start: 202401
  17. OLOPATADINE [Concomitant]
     Active Substance: OLOPATADINE
     Indication: Pruritus
     Dosage: 1 DOSAGE FORM, QD (1 DROP IN EACH EYE)
  18. SALMETEROL [Concomitant]
     Active Substance: SALMETEROL
     Indication: Product used for unknown indication
     Route: 065
     Dates: start: 202401
  19. SALMETEROL [Concomitant]
     Active Substance: SALMETEROL
     Dosage: 3 DOSAGE FORM, BID (2 INHALATIONS IN THE MORNING AND 1 IN THE AFTERNOON) (INHALATION SUSPENSION)
  20. BILASTINE [Concomitant]
     Active Substance: BILASTINE
     Dates: start: 202401

REACTIONS (15)
  - Asthmatic crisis [Unknown]
  - Abdominal pain [Unknown]
  - Asthmatic crisis [Recovered/Resolved]
  - Rash [Recovered/Resolved]
  - Cough [Recovered/Resolved]
  - Product availability issue [Unknown]
  - Hypersensitivity [Unknown]
  - Nasal congestion [Unknown]
  - Eye allergy [Unknown]
  - Injection site pain [Unknown]
  - Malaise [Unknown]
  - Injection site haemorrhage [Recovered/Resolved]
  - Sensitive skin [Unknown]
  - Respiratory tract inflammation [Unknown]
  - Obstructive airways disorder [Unknown]

NARRATIVE: CASE EVENT DATE: 20230505
